FAERS Safety Report 19468961 (Version 1)
Quarter: 2021Q2

REPORT INFORMATION
  Report Type: Report from Study
  Country: None (occurrence: US)
  Receive Date: 20210629
  Receipt Date: 20210629
  Transmission Date: 20210717
  Serious: Yes (Hospitalization, Other)
  Sender: FDA-Public Use
  Company Number: US-ABBVIE-21K-163-3935293-00

PATIENT
  Sex: Male
  Weight: 73.55 kg

DRUGS (4)
  1. COVID?19 VACCINE [Concomitant]
     Dosage: 2 DOSE
     Route: 030
     Dates: start: 2021, end: 2021
  2. COVID?19 VACCINE [Concomitant]
     Indication: COVID-19 IMMUNISATION
     Dosage: 1  DOSE
     Route: 030
     Dates: start: 2021, end: 2021
  3. DUOPA [Suspect]
     Active Substance: CARBIDOPA\LEVODOPA
     Indication: PARKINSON^S DISEASE
     Route: 050
     Dates: start: 2010, end: 2021
  4. DUOPA [Suspect]
     Active Substance: CARBIDOPA\LEVODOPA

REACTIONS (8)
  - Hospitalisation [Unknown]
  - Small intestinal perforation [Recovered/Resolved]
  - Thrombosis [Recovering/Resolving]
  - Device dislocation [Unknown]
  - Physiotherapy [Unknown]
  - Rehabilitation therapy [Unknown]
  - SARS-CoV-2 test positive [Recovered/Resolved]
  - Malaise [Not Recovered/Not Resolved]

NARRATIVE: CASE EVENT DATE: 2021
